FAERS Safety Report 5956147-1 (Version None)
Quarter: 2008Q4

REPORT INFORMATION
  Report Type: 
  Country: None (occurrence: None)
  Receive Date: 20081112
  Receipt Date: 20081031
  Transmission Date: 20090506
  Serious: Yes (Other)
  Sender: FDA-Public Use
  Company Number: 2008AL011546

PATIENT
  Sex: Female

DRUGS (1)
  1. DIGOXIN [Suspect]
     Dosage: 0.125MG, PO
     Route: 048

REACTIONS (17)
  - ANOREXIA [None]
  - ANXIETY [None]
  - BRADYCARDIA [None]
  - COLD SWEAT [None]
  - DIZZINESS [None]
  - HEART RATE IRREGULAR [None]
  - LOSS OF CONSCIOUSNESS [None]
  - NAUSEA [None]
  - NOCTURIA [None]
  - ORTHOPNOEA [None]
  - PAIN [None]
  - PALPITATIONS [None]
  - RENAL FAILURE [None]
  - THERAPEUTIC AGENT TOXICITY [None]
  - URINE OUTPUT DECREASED [None]
  - VISUAL IMPAIRMENT [None]
  - VOMITING [None]
